FAERS Safety Report 19147488 (Version 1)
Quarter: 2021Q2

REPORT INFORMATION
  Report Type: Spontaneous
  Country: US (occurrence: US)
  Receive Date: 20210416
  Receipt Date: 20210416
  Transmission Date: 20210717
  Serious: Yes (Other)
  Sender: FDA-Public Use
  Company Number: US-GLAXOSMITHKLINE-USCH2021017861

PATIENT

DRUGS (1)
  1. CHAPSTICK (AVOBEN+DIMETH+HOMO+OCTINO+OCTIS+OXYBEN) [Suspect]
     Active Substance: AVOBENZONE\DIMETHICONE\HOMOSALATE\OCTINOXATE\OCTISALATE\OXYBENZONE
     Indication: PRODUCT USED FOR UNKNOWN INDICATION

REACTIONS (1)
  - Drug dependence [Unknown]
